FAERS Safety Report 6868747-5 (Version None)
Quarter: 2010Q3

REPORT INFORMATION
  Report Type: 
  Country: None (occurrence: None)
  Receive Date: 20100722
  Receipt Date: 20080612
  Transmission Date: 20110219
  Serious: Yes (Death)
  Sender: FDA-Public Use
  Company Number: US-PFIZER INC-2008050455

PATIENT
  Sex: Male

DRUGS (9)
  1. CHANTIX [Suspect]
     Indication: SMOKING CESSATION THERAPY
  2. EFFEXOR [Concomitant]
  3. ALLEGRA [Concomitant]
  4. ATACAND [Concomitant]
  5. AMBIEN [Concomitant]
  6. TESTOSTERONE [Concomitant]
     Indication: ANDROGEN DEFICIENCY
     Route: 051
  7. VICODIN [Concomitant]
  8. NASONEX [Concomitant]
  9. KLONOPIN [Concomitant]

REACTIONS (1)
  - COMPLETED SUICIDE [None]
